FAERS Safety Report 9361794 (Version 2)
Quarter: 2013Q3

REPORT INFORMATION
  Report Type: Report from Study
  Country: US (occurrence: US)
  Receive Date: 20130621
  Receipt Date: 20130715
  Transmission Date: 20140515
  Serious: Yes (Life-Threatening, Hospitalization)
  Sender: FDA-Public Use
  Company Number: US-JNJFOC-20130608804

PATIENT
  Age: 56 Year
  Sex: Female
  Weight: 92.08 kg

DRUGS (13)
  1. RISPERDAL [Suspect]
     Indication: SCHIZOPHRENIA
     Route: 048
     Dates: start: 20130213
  2. DULCOLAX [Concomitant]
     Indication: CONSTIPATION
     Route: 065
     Dates: start: 20130305
  3. DEPAKOTE ER [Concomitant]
     Indication: DEPRESSION
     Route: 065
     Dates: start: 20130213
  4. CYMBALTA [Concomitant]
     Indication: DEPRESSION
     Route: 065
     Dates: start: 20130213
  5. VISTARIL [Concomitant]
     Indication: ANXIETY
     Route: 065
     Dates: start: 20130213
  6. AMBIEN [Concomitant]
     Indication: SLEEP DISORDER
     Route: 065
     Dates: start: 20130213
  7. COLACE [Concomitant]
     Indication: CONSTIPATION
     Route: 065
     Dates: start: 20130304
  8. MAGNESIUM HYDROXIDE [Concomitant]
     Indication: CONSTIPATION
     Route: 065
     Dates: start: 20130305
  9. DILTIAZEM HCL [Concomitant]
     Indication: HYPERTENSION
     Route: 065
     Dates: start: 20130304
  10. HYDRALAZINE HCL [Concomitant]
     Indication: HYPERTENSION
     Route: 065
     Dates: start: 20130304
  11. NICOTINE [Concomitant]
     Indication: SMOKING CESSATION THERAPY
     Route: 065
  12. OMEPRAZOLE [Concomitant]
     Indication: GASTROOESOPHAGEAL REFLUX DISEASE
     Route: 065
     Dates: start: 20130304
  13. IBUPROFEN [Concomitant]
     Indication: PAIN
     Route: 065
     Dates: start: 20130304

REACTIONS (3)
  - Pneumonia aspiration [Recovered/Resolved]
  - Influenza [Recovered/Resolved]
  - Hyponatraemia [Recovered/Resolved]
